FAERS Safety Report 7442944-2 (Version None)
Quarter: 2011Q2

REPORT INFORMATION
  Report Type: 
  Country: None (occurrence: None)
  Receive Date: 20110419
  Receipt Date: 20110405
  Transmission Date: 20111010
  Serious: Yes (Other)
  Sender: FDA-Public Use
  Company Number: 029795

PATIENT
  Sex: Female
  Weight: 46 kg

DRUGS (9)
  1. LAMICTAL [Suspect]
     Dosage: 150 MG, ROUTE : ENTERAL TUBE
     Dates: start: 20101225, end: 20110322
  2. PANTOSIN [Concomitant]
  3. VANCOMYCIN HYDROCHLORIDE [Concomitant]
  4. DIGOSIN [Concomitant]
  5. FAMOTIDINE [Concomitant]
  6. DEPAKENE /00228502/ (DEPAKENE) (NOT SPECIFIED) [Suspect]
     Dosage: 1600 MG, ROUTE: ENTERAL TUBE
  7. MIYA-BM [Concomitant]
  8. MAINTATE [Concomitant]
  9. KEPPRA [Suspect]
     Indication: EPILEPSY
     Dosage: 500 MG BID, ROUTE: ENTERAL TUBE)
     Dates: start: 20110317, end: 20110319

REACTIONS (22)
  - CONVULSION [None]
  - BASOPHIL PERCENTAGE INCREASED [None]
  - ASPARTATE AMINOTRANSFERASE INCREASED [None]
  - C-REACTIVE PROTEIN INCREASED [None]
  - MONOCYTE PERCENTAGE INCREASED [None]
  - WHITE BLOOD CELL COUNT INCREASED [None]
  - ALANINE AMINOTRANSFERASE INCREASED [None]
  - NEUTROPHIL PERCENTAGE INCREASED [None]
  - BLOOD POTASSIUM DECREASED [None]
  - PROTEIN TOTAL DECREASED [None]
  - LYMPHOCYTE PERCENTAGE DECREASED [None]
  - NEUTROPHIL PERCENTAGE DECREASED [None]
  - BLOOD ALKALINE PHOSPHATASE INCREASED [None]
  - BLOOD SODIUM INCREASED [None]
  - BLOOD UREA INCREASED [None]
  - BLOOD LACTATE DEHYDROGENASE INCREASED [None]
  - BODY TEMPERATURE INCREASED [None]
  - MONOCYTE PERCENTAGE DECREASED [None]
  - DRUG HYPERSENSITIVITY [None]
  - BLOOD GLUCOSE INCREASED [None]
  - HAEMOGLOBIN DECREASED [None]
  - BLOOD ALBUMIN DECREASED [None]
